FAERS Safety Report 4435251-3 (Version None)
Quarter: 2004Q3

REPORT INFORMATION
  Report Type: 
  Country: None (occurrence: None)
  Receive Date: 20040827
  Receipt Date: 20040819
  Transmission Date: 20050211
  Serious: Yes (Hospitalization)
  Sender: FDA-Public Use
  Company Number: SE-GLAXOSMITHKLINE-B0343578A

PATIENT
  Age: 51 Year
  Sex: Male

DRUGS (3)
  1. COMBIVIR [Suspect]
     Indication: HIV INFECTION
     Dosage: 2TAB PER DAY
     Route: 048
     Dates: start: 20021023
  2. VIDEX [Suspect]
     Indication: HIV INFECTION
     Dosage: 1CAP PER DAY
     Route: 048
     Dates: start: 20021023
  3. KALETRA [Suspect]
     Indication: HIV INFECTION
     Dosage: 6CAP PER DAY
     Route: 048
     Dates: start: 20031023

REACTIONS (4)
  - DYSPNOEA [None]
  - FATIGUE [None]
  - PALPITATIONS [None]
  - PULMONARY EMBOLISM [None]
